FAERS Safety Report 19518338 (Version 2)
Quarter: 2021Q3

REPORT INFORMATION
  Report Type: Spontaneous
  Country: BG (occurrence: BG)
  Receive Date: 20210712
  Receipt Date: 20210830
  Transmission Date: 20211014
  Serious: Yes (Hospitalization, Other)
  Sender: FDA-Public Use
  Company Number: BG-AMGEN-BGRSP2021103035

PATIENT
  Age: 67 Year
  Sex: Female

DRUGS (2)
  1. VIGANTOL [COLECALCIFEROL] [Concomitant]
     Active Substance: CHOLECALCIFEROL
     Dosage: 40 DROP, QWK
  2. PROLIA [Suspect]
     Active Substance: DENOSUMAB
     Indication: OSTEOPOROSIS
     Dosage: UNK
     Route: 065
     Dates: start: 201405, end: 201909

REACTIONS (7)
  - Wrist fracture [Unknown]
  - Kyphosis [Unknown]
  - Autoimmune thyroiditis [Unknown]
  - Thoracic vertebral fracture [Unknown]
  - Thyroid adenoma [Unknown]
  - Renal failure [Unknown]
  - Nephrolithiasis [Unknown]

NARRATIVE: CASE EVENT DATE: 201609
